FAERS Safety Report 5952591-7 (Version None)
Quarter: 2008Q4

REPORT INFORMATION
  Report Type: 
  Country: None (occurrence: None)
  Receive Date: 20081031
  Receipt Date: 20080305
  Transmission Date: 20090506
  Serious: Yes (Other)
  Sender: FDA-Public Use
  Company Number: US022899

PATIENT
  Sex: Female

DRUGS (2)
  1. PROVIGIL [Suspect]
     Dosage: ORAL
     Route: 048
  2. IUD [Concomitant]

REACTIONS (4)
  - ABORTION SPONTANEOUS [None]
  - DEVICE INTERACTION [None]
  - DRUG EXPOSURE DURING PREGNANCY [None]
  - PREGNANCY WITH CONTRACEPTIVE DEVICE [None]
